FAERS Safety Report 10023420 (Version 1)
Quarter: 2013Q4

REPORT INFORMATION
  Report Type: Spontaneous
  Country: US (occurrence: None)
  Receive Date: 20131223
  Receipt Date: 20131223
  Transmission Date: 20140711
  Serious: Yes (Other)
  Sender: FDA-Public Use
  Company Number: EUS-2012-00939

PATIENT
  Age: 15 Year
  Sex: Male

DRUGS (7)
  1. ASPARAGINASE [Suspect]
     Indication: ACUTE LYMPHOCYTIC LEUKAEMIA
     Dosage: DAYS 2, 5, 8, 12, AND 15 (UNKNOWN), UNKNOWN
  2. METHOTREXATE (METHOTREXATE) (UNKNOWN) MTHOTREXATE) [Concomitant]
  3. HYDROCORTISONE (HYDROCORTISONE) (UNKNOWN) (HYDROCORTISONE)? [Concomitant]
  4. CYTOSINE ARABINOSIDE (CYTARABINE) (UNKNOWN) CYTARABINE) [Concomitant]
  5. PREDNISONE (PREDNISONE) (UNKNOWN) (PREDNISONE) [Concomitant]
  6. VINCRISTINE (VINCRISTINE) (UNKNOWN) (VINCRISTINE) [Concomitant]
  7. DAUNOMYCIN (DAUNORUBICIN) (UNKNOWN) (DAUNORUBICIN) [Concomitant]

REACTIONS (2)
  - Pancreatitis [None]
  - Parotitis [None]
